FAERS Safety Report 25366191 (Version 1)
Quarter: 2025Q2

REPORT INFORMATION
  Report Type: Spontaneous
  Country: RU (occurrence: RU)
  Receive Date: 20250528
  Receipt Date: 20250528
  Transmission Date: 20250717
  Serious: Yes (Hospitalization, Other)
  Sender: ROCHE
  Company Number: RU-ROCHE-10000291919

PATIENT
  Age: 57 Year

DRUGS (1)
  1. EMICIZUMAB [Suspect]
     Active Substance: EMICIZUMAB
     Indication: Haemophilia A with anti factor VIII
     Route: 065

REACTIONS (9)
  - Phimosis [Unknown]
  - Haemorrhoids [Unknown]
  - Haemorrhoids thrombosed [Unknown]
  - Anal haemorrhage [Unknown]
  - Blood loss anaemia [Unknown]
  - Haematochezia [Unknown]
  - Secretion discharge [Unknown]
  - Extra dose administered [Unknown]
  - Rectal haemorrhage [Unknown]
